FAERS Safety Report 8603938-4 (Version None)
Quarter: 2012Q3

REPORT INFORMATION
  Report Type: 
  Country: None (occurrence: None)
  Receive Date: 20120820
  Receipt Date: 20120813
  Transmission Date: 20120928
  Serious: Yes (Hospitalization, Other)
  Sender: FDA-Public Use
  Company Number: US-BIOGENIDEC-2012BI017364

PATIENT
  Age: 64 Year
  Sex: Female

DRUGS (1)
  1. TYSABRI [Suspect]
     Indication: MULTIPLE SCLEROSIS
     Route: 042
     Dates: start: 20070131, end: 20120501

REACTIONS (6)
  - DRUG INEFFECTIVE [None]
  - MULTIPLE SCLEROSIS [None]
  - PARTIAL SEIZURES [None]
  - PROGRESSIVE MULTIFOCAL LEUKOENCEPHALOPATHY [None]
  - CLOSTRIDIUM DIFFICILE COLITIS [None]
  - SHIGELLA INFECTION [None]
